FAERS Safety Report 19371908 (Version 2)
Quarter: 2021Q3

REPORT INFORMATION
  Report Type: Spontaneous
  Country: UZ (occurrence: UZ)
  Receive Date: 20210604
  Receipt Date: 20210905
  Transmission Date: 20211014
  Serious: Yes (Death, Life-Threatening, Hospitalization)
  Sender: FDA-Public Use
  Company Number: UZ-JNJFOC-20210556898

PATIENT
  Age: 19 Year
  Sex: Female
  Weight: 47 kg

DRUGS (7)
  1. LINEZOLID. [Suspect]
     Active Substance: LINEZOLID
     Indication: TUBERCULOSIS
     Dosage: 300
     Route: 048
     Dates: start: 20210318, end: 20210422
  2. AMOXICILLIN/CLAVULANIC ACID [Suspect]
     Active Substance: AMOXICILLIN\CLAVULANIC ACID
     Indication: TUBERCULOSIS
     Dosage: 1250
     Route: 048
     Dates: start: 20210318, end: 20210422
  3. SIRTURO [Suspect]
     Active Substance: BEDAQUILINE FUMARATE
     Indication: TUBERCULOSIS
     Dosage: 400
     Route: 048
     Dates: start: 20210318, end: 20210422
  4. IMIPENEM [Suspect]
     Active Substance: IMIPENEM
     Indication: TUBERCULOSIS
     Dosage: 2000
     Route: 042
     Dates: start: 20210318, end: 20210422
  5. CYCLOSERINE. [Suspect]
     Active Substance: CYCLOSERINE
     Indication: TUBERCULOSIS
     Dosage: 750
     Route: 048
     Dates: start: 20210318, end: 20210322
  6. CLOFAZIMINE [Suspect]
     Active Substance: CLOFAZIMINE
     Indication: TUBERCULOSIS
     Dosage: 100
     Route: 048
     Dates: start: 20210318, end: 20210422
  7. DELAMANID [Suspect]
     Active Substance: DELAMANID
     Indication: TUBERCULOSIS
     Dosage: 100
     Route: 065
     Dates: start: 20210528

REACTIONS (2)
  - Anaemia [Recovering/Resolving]
  - Deep vein thrombosis [Fatal]

NARRATIVE: CASE EVENT DATE: 20210421
